FAERS Safety Report 9829267 (Version 2)
Quarter: 2014Q1

REPORT INFORMATION
  Report Type: Report from Study
  Country: US (occurrence: US)
  Receive Date: 20140120
  Receipt Date: 20140120
  Transmission Date: 20141002
  Serious: Yes (Death)
  Sender: FDA-Public Use
  Company Number: US-ASTRAZENECA-2013SE51335

PATIENT
  Age: 70 Year
  Sex: Male
  Weight: 140.6 kg

DRUGS (23)
  1. ATENOLOL [Suspect]
     Indication: CARDIAC FAILURE CONGESTIVE
     Route: 048
  2. ATENOLOL [Suspect]
     Indication: DIABETES MELLITUS
     Route: 048
  3. SYMBICORT [Suspect]
     Indication: CHRONIC OBSTRUCTIVE PULMONARY DISEASE
     Dosage: 80/4.5, UNKNOWN
     Route: 055
  4. SYMBICORT [Suspect]
     Indication: DIABETES MELLITUS
     Dosage: 80/4.5, UNKNOWN
     Route: 055
  5. SYMBICORT [Suspect]
     Indication: CHRONIC OBSTRUCTIVE PULMONARY DISEASE
     Dosage: 160/4.5, 2 PUFFS,BID
     Route: 055
     Dates: start: 2007, end: 20130701
  6. SYMBICORT [Suspect]
     Indication: DIABETES MELLITUS
     Dosage: 160/4.5, 2 PUFFS,BID
     Route: 055
     Dates: start: 2007, end: 20130701
  7. CRESTOR [Suspect]
     Indication: CORONARY ARTERY DISEASE
     Route: 048
  8. CRESTOR [Suspect]
     Indication: HYPERLIPIDAEMIA
     Route: 048
  9. CRESTOR [Suspect]
     Indication: DIABETES MELLITUS
     Route: 048
  10. NOVULIN N [Concomitant]
     Indication: DIABETES MELLITUS
     Dosage: 50 UNITS TWO TIMES A DAY
     Route: 042
  11. NOVULIN R [Concomitant]
     Indication: DIABETES MELLITUS
     Dosage: AC
     Route: 042
  12. BIPAP [Concomitant]
     Dosage: HS
     Route: 048
  13. CLORORTOLONE PIBLATE [Concomitant]
  14. DOXAZONIN [Concomitant]
     Dosage: DAILY
  15. ENALOPRIL [Concomitant]
     Dosage: BID
  16. GABAPENTIN [Concomitant]
  17. HYDROCHLORO APAP [Concomitant]
  18. HYDROCODONE ACETOMINOPHEN [Concomitant]
  19. METOLAZONES [Concomitant]
  20. PRAMIPEXOLE [Concomitant]
     Dosage: PRN
  21. SINTROCID [Concomitant]
  22. SPIRIVA [Concomitant]
     Indication: CHRONIC OBSTRUCTIVE PULMONARY DISEASE
     Dosage: ONE PUFF DAILY
     Route: 055
  23. TRAMADOL [Concomitant]
     Dosage: PRN

REACTIONS (2)
  - Multi-organ failure [Fatal]
  - Off label use [Unknown]
